FAERS Safety Report 7481136-8 (Version None)
Quarter: 2011Q2

REPORT INFORMATION
  Report Type: 
  Country: None (occurrence: None)
  Receive Date: 20110504
  Receipt Date: 20110421
  Transmission Date: 20111010
  Serious: Yes (Hospitalization, Disabling)
  Sender: FDA-Public Use
  Company Number: 2010SP058340

PATIENT
  Age: 28 Year
  Sex: Female
  Weight: 58.0604 kg

DRUGS (1)
  1. NUVARING [Suspect]
     Indication: MENSTRUAL CYCLE MANAGEMENT
     Dates: start: 20090601, end: 20100321

REACTIONS (17)
  - FIBRIN D DIMER INCREASED [None]
  - PROTHROMBIN TIME PROLONGED [None]
  - NAUSEA [None]
  - ACTIVATED PARTIAL THROMBOPLASTIN TIME PROLONGED [None]
  - LUNG DISORDER [None]
  - PELVIC FLUID COLLECTION [None]
  - BLOOD ALBUMIN DECREASED [None]
  - HYPERCOAGULATION [None]
  - ANXIETY [None]
  - PRESYNCOPE [None]
  - PULMONARY INFARCTION [None]
  - DEVICE DISLOCATION [None]
  - ADNEXA UTERI CYST [None]
  - BRADYCARDIA [None]
  - PULMONARY EMBOLISM [None]
  - DEEP VEIN THROMBOSIS [None]
  - EXERCISE TOLERANCE DECREASED [None]
